FAERS Safety Report 18899577 (Version 2)
Quarter: 2021Q2

REPORT INFORMATION
  Report Type: Report from Study
  Country: CA (occurrence: CA)
  Receive Date: 20210216
  Receipt Date: 20210531
  Transmission Date: 20210717
  Serious: Yes (Hospitalization, Other)
  Sender: FDA-Public Use
  Company Number: CA-SHIRE-CA202022507

PATIENT
  Age: 48 Year
  Sex: Female

DRUGS (2)
  1. CUVITRU [Suspect]
     Active Substance: HUMAN IMMUNOGLOBULIN G
     Indication: SECONDARY IMMUNODEFICIENCY
     Dosage: 16 GRAM, 1X/WEEK
     Route: 058
     Dates: start: 20180922
  2. SOLU?MEDROL [Concomitant]
     Active Substance: METHYLPREDNISOLONE SODIUM SUCCINATE
     Indication: PRODUCT USED FOR UNKNOWN INDICATION
     Dosage: UNK
     Route: 065

REACTIONS (4)
  - Asthma [Recovered/Resolved]
  - Product availability issue [Unknown]
  - Pneumonia [Recovered/Resolved]
  - Blood lactic acid increased [Recovered/Resolved]

NARRATIVE: CASE EVENT DATE: 202007
